FAERS Safety Report 6410152-X (Version None)
Quarter: 2009Q4

REPORT INFORMATION
  Report Type: 
  Country: None (occurrence: None)
  Receive Date: 20091022
  Receipt Date: 20091012
  Transmission Date: 20100525
  Serious: Yes (Other)
  Sender: FDA-Public Use
  Company Number: FR-ROCHE-662020

PATIENT
  Age: 46 Year
  Sex: Male

DRUGS (4)
  1. MYCOPHENOLATE MOFETIL [Suspect]
     Route: 065
  2. INFLIXIMAB [Suspect]
     Route: 065
  3. INFLIXIMAB [Suspect]
     Dosage: 5 MG/KG PER INFUSION
     Route: 065
     Dates: start: 20070101
  4. INFLIXIMAB [Suspect]
     Dosage: 3 MG/KG PER INFUSION
     Route: 065
     Dates: start: 20060101

REACTIONS (4)
  - APRAXIA [None]
  - DEAFNESS BILATERAL [None]
  - HEMIPLEGIA [None]
  - MENINGITIS CRYPTOCOCCAL [None]
